FAERS Safety Report 4390767-3 (Version None)
Quarter: 2004Q3

REPORT INFORMATION
  Report Type: 
  Country: None (occurrence: None)
  Receive Date: 20040706
  Receipt Date: 20040706
  Transmission Date: 20050211
  Serious: Yes (Life-Threatening, Hospitalization)
  Sender: FDA-Public Use
  Company Number: None

PATIENT
  Age: 17 Year
  Sex: Female
  Weight: 63.5036 kg

DRUGS (2)
  1. PONSTEL [Suspect]
     Indication: HEADACHE
     Dosage: 250 MG TWICE A DA ORAL
     Route: 048
     Dates: start: 20040404, end: 20040427
  2. IBUPROFEN [Concomitant]

REACTIONS (9)
  - AGGRESSION [None]
  - BLOOD PRESSURE DECREASED [None]
  - CONDITION AGGRAVATED [None]
  - CONVULSION [None]
  - HEADACHE [None]
  - LOSS OF CONSCIOUSNESS [None]
  - MIGRAINE [None]
  - MYOCLONUS [None]
  - PETIT MAL EPILEPSY [None]
